FAERS Safety Report 22532333 (Version 1)
Quarter: 2023Q2

REPORT INFORMATION
  Report Type: Report from Study
  Country: BE (occurrence: BE)
  Receive Date: 20230607
  Receipt Date: 20230607
  Transmission Date: 20230722
  Serious: Yes (Hospitalization)
  Sender: FDA-Public Use
  Company Number: BE-ABBVIE-5281228

PATIENT
  Age: 57 Year
  Sex: Female
  Weight: 63 kg

DRUGS (18)
  1. UPADACITINIB [Suspect]
     Active Substance: UPADACITINIB
     Indication: Rheumatoid arthritis
     Dosage: 15 MILLIGRAM
     Route: 048
     Dates: start: 20230326, end: 20230607
  2. UPADACITINIB [Suspect]
     Active Substance: UPADACITINIB
     Indication: Rheumatoid arthritis
     Dosage: 15 MILLIGRAM
     Route: 048
     Dates: start: 20210414, end: 20230320
  3. BETAMETHASONE [Concomitant]
     Active Substance: BETAMETHASONE
     Indication: Rheumatoid arthritis
     Route: 014
     Dates: start: 20211208, end: 20211208
  4. METHOTREXATE [Concomitant]
     Active Substance: METHOTREXATE
     Indication: Rheumatoid arthritis
     Dosage: WEEKLY
     Route: 048
     Dates: start: 20190409
  5. ASPIRIN [Concomitant]
     Active Substance: ASPIRIN
     Indication: Subclavian artery stenosis
     Dosage: 80 MILLIGRAM
     Route: 048
     Dates: start: 20230322
  6. RISEDRONATE SODIUM [Concomitant]
     Active Substance: RISEDRONATE SODIUM
     Indication: Osteoporosis
     Route: 048
     Dates: start: 20200806
  7. METHYLPREDNISOLONE [Concomitant]
     Active Substance: METHYLPREDNISOLONE
     Indication: Rheumatoid arthritis
     Dosage: 4 MILLIGRAM
     Route: 048
     Dates: start: 20210325, end: 20210616
  8. SARS-CoV-2 vaccine [Concomitant]
     Indication: COVID-19 prophylaxis
     Route: 030
     Dates: start: 20210626, end: 20210626
  9. SARS-CoV-2 vaccine [Concomitant]
     Indication: COVID-19 prophylaxis
     Route: 030
     Dates: start: 20210522, end: 20210522
  10. SARS-CoV-2 vaccine [Concomitant]
     Indication: COVID-19 prophylaxis
     Route: 030
     Dates: start: 20210929, end: 20210929
  11. SARS-CoV-2 vaccine [Concomitant]
     Indication: COVID-19 prophylaxis
     Route: 030
     Dates: start: 20221221, end: 20221221
  12. SARS-CoV-2 vaccine [Concomitant]
     Indication: COVID-19 prophylaxis
     Route: 030
     Dates: start: 20220221, end: 20220221
  13. FOLIC ACID [Concomitant]
     Active Substance: FOLIC ACID
     Indication: Prophylaxis
     Dosage: 5 MILLIGRAM
     Route: 048
     Dates: start: 20190410
  14. VITAMIN D [Concomitant]
     Active Substance: VITAMIN D NOS
     Indication: Osteoporosis
     Route: 048
     Dates: start: 20181003
  15. STREPTOCOCCUS PNEUMONIAE [Concomitant]
     Indication: Prophylaxis
  16. ROSUVASTATIN [Concomitant]
     Active Substance: ROSUVASTATIN
     Indication: Hypercholesterolaemia
     Dosage: 10 MILLIGRAM
     Route: 048
     Dates: start: 20220613
  17. INFLUENZA VIRUS VACCINE [Concomitant]
     Active Substance: INFLUENZA VIRUS VACCINE
     Indication: Antiviral prophylaxis
     Dates: start: 202010, end: 202010
  18. CALCIUM CARBONATE PCH [Concomitant]
     Indication: Osteoporosis
     Dosage: 1.25 GRAM
     Route: 048
     Dates: start: 20181003

REACTIONS (1)
  - Subclavian artery stenosis [Not Recovered/Not Resolved]

NARRATIVE: CASE EVENT DATE: 20221221
